FAERS Safety Report 9255360 (Version 1)
Quarter: 2013Q1

REPORT INFORMATION
  Report Type: Spontaneous
  Country: US (occurrence: None)
  Receive Date: 20121212
  Receipt Date: 20121212
  Transmission Date: 20140127
  Serious: No
  Sender: FDA-Public Use
  Company Number: 1209USA006559

PATIENT
  Age: 59 Year
  Sex: Male
  Weight: 76.2 kg

DRUGS (8)
  1. VICTRELIS [Suspect]
     Indication: HEPATITIS C
  2. TOPROL XL TABLETS (METOPROLOL SUCCINATE) [Concomitant]
  3. PEGASYS (PEGINTERFERON ALFA-2A) [Concomitant]
  4. REBETOL (RIBAVIRIN) [Concomitant]
  5. EPOGEN (EPOETIN ALFA) [Concomitant]
  6. ASPIRIN (ASPIRIN) [Concomitant]
  7. ENSURE (MINERALS (UNSPECIFIED) PROTEIN (UNSPECIFIED, VITAMINS (UNSPECIFED) [Concomitant]
  8. VITAMINS (UNSPECIFIED) [Concomitant]

REACTIONS (1)
  - Anaemia [None]
